FAERS Safety Report 8763012 (Version 3)
Quarter: 2013Q4

REPORT INFORMATION
  Report Type: Spontaneous
  Country: CN (occurrence: None)
  Receive Date: 20120824
  Receipt Date: 20131211
  Transmission Date: 20140711
  Serious: Yes (Hospitalization)
  Sender: FDA-Public Use
  Company Number: UTC-022091

PATIENT
  Age: 85 Year
  Sex: Male
  Weight: 51 kg

DRUGS (5)
  1. REMODULIN [Suspect]
     Indication: PULMONARY ARTERIAL HYPERTENSION
     Dosage: 25.92 UG/KG (0.018 UG/KG, 1 IN MIN)
     Route: 058
     Dates: start: 20120807
  2. DIGOXIN [Concomitant]
  3. UNASYN (SULTAMICILLIN) [Concomitant]
  4. DOBUTAMINE [Concomitant]
  5. SOLUCORTEF (HYDROCORTISONE SODIUM SUCCINATE) [Concomitant]

REACTIONS (6)
  - Joint injury [None]
  - Contusion [None]
  - Platelet count decreased [None]
  - Blood pressure systolic increased [None]
  - Blood pressure diastolic decreased [None]
  - Pulmonary oedema [None]
